FAERS Safety Report 9196439 (Version 2)
Quarter: 2013Q2

REPORT INFORMATION
  Report Type: Spontaneous
  Country: US (occurrence: US)
  Receive Date: 20130328
  Receipt Date: 20130405
  Transmission Date: 20140414
  Serious: No
  Sender: FDA-Public Use
  Company Number: US-PFIZER INC-2013097823

PATIENT
  Age: 57 Year
  Sex: Female
  Weight: 65.76 kg

DRUGS (2)
  1. ESTRING [Suspect]
     Indication: MENOPAUSAL SYMPTOMS
     Dosage: 2 MG, UNK
     Route: 067
     Dates: start: 20130312, end: 20130322
  2. METHOTREXATE [Concomitant]
     Indication: RHEUMATOID ARTHRITIS
     Dosage: UNK,WEEKLY

REACTIONS (5)
  - Pelvic pain [Recovered/Resolved]
  - Malaise [Recovered/Resolved]
  - Headache [Recovered/Resolved]
  - Abdominal pain lower [Recovered/Resolved]
  - Drug hypersensitivity [Unknown]
